FAERS Safety Report 20483925 (Version 2)
Quarter: 2022Q2

REPORT INFORMATION
  Report Type: Report from Study
  Country: US (occurrence: US)
  Receive Date: 20220217
  Receipt Date: 20220407
  Transmission Date: 20220721
  Serious: Yes (Hospitalization, Other)
  Sender: FDA-Public Use
  Company Number: US-BIOVITRUM-2022US00494

PATIENT
  Age: 0 Year
  Sex: Female

DRUGS (19)
  1. SYNAGIS [Suspect]
     Active Substance: PALIVIZUMAB
     Indication: Antiviral prophylaxis
     Route: 030
  2. SYNAGIS [Suspect]
     Active Substance: PALIVIZUMAB
     Dosage: 100MG/1ML
     Route: 030
  3. BUDESONIDE [Concomitant]
     Active Substance: BUDESONIDE
  4. CHOLECAL DF [Concomitant]
  5. ZINC OXIDE [Concomitant]
     Active Substance: ZINC OXIDE
  6. GLYCERIN CHILD [Concomitant]
  7. FUROSEMIDE [Concomitant]
     Active Substance: FUROSEMIDE
  8. FLOVENT [Concomitant]
     Active Substance: FLUTICASONE PROPIONATE
  9. ASPIRIN [Concomitant]
     Active Substance: ASPIRIN
  10. FLUZONE QUADRIVALENT 2021 [Concomitant]
  11. IPRATROPIUM BROMIDE [Concomitant]
     Active Substance: IPRATROPIUM BROMIDE
  12. LANSOPRAZOLE [Concomitant]
     Active Substance: LANSOPRAZOLE
  13. ALBUTEROL [Concomitant]
     Active Substance: ALBUTEROL
  14. DIURIL [Concomitant]
     Active Substance: CHLOROTHIAZIDE
  15. DIGOX [Concomitant]
     Active Substance: DIGOXIN
  16. D-VI-SOL [Concomitant]
  17. AMOXICILLIN [Concomitant]
     Active Substance: AMOXICILLIN
  18. METOCLOPRAMIDE HYDROCHLORIDE [Concomitant]
     Active Substance: METOCLOPRAMIDE HYDROCHLORIDE
  19. FAMOTIDINE [Concomitant]
     Active Substance: FAMOTIDINE

REACTIONS (5)
  - Haematemesis [Unknown]
  - Heart rate increased [Unknown]
  - Cough [Unknown]
  - Vomiting [Unknown]
  - Pyrexia [Unknown]

NARRATIVE: CASE EVENT DATE: 20220209
